FAERS Safety Report 5823809-6 (Version None)
Quarter: 2008Q3

REPORT INFORMATION
  Report Type: 
  Country: None (occurrence: None)
  Receive Date: 20080725
  Receipt Date: 20080716
  Transmission Date: 20090109
  Serious: Yes (Other)
  Sender: FDA-Public Use
  Company Number: US-PFIZER INC-2008059986

PATIENT
  Sex: Female
  Weight: 55.454 kg

DRUGS (5)
  1. CARDURA [Suspect]
  2. NORVASC [Suspect]
  3. CAPTOPRIL [Suspect]
  4. LASIX [Suspect]
  5. AMILORIDE HYDROCHLORIDE [Suspect]

REACTIONS (5)
  - BLOOD PRESSURE SYSTOLIC INCREASED [None]
  - DIZZINESS [None]
  - FEELING ABNORMAL [None]
  - HYPERTENSION [None]
  - VOMITING [None]
